FAERS Safety Report 6020391-8 (Version None)
Quarter: 2008Q4

REPORT INFORMATION
  Report Type: 
  Country: None (occurrence: None)
  Receive Date: 20081226
  Receipt Date: 20081217
  Transmission Date: 20090506
  Serious: Yes (Hospitalization)
  Sender: FDA-Public Use
  Company Number: US-MERCK-0705USA02815

PATIENT
  Age: 65 Year
  Sex: Female

DRUGS (7)
  1. FOSAMAX [Suspect]
     Indication: OSTEOPOROSIS
     Route: 048
     Dates: start: 19970115, end: 20020201
  2. FOSAMAX [Suspect]
     Route: 048
     Dates: start: 20010924, end: 20070201
  3. PREMARIN [Concomitant]
     Route: 065
     Dates: start: 19880101, end: 20050101
  4. FLEXERIL [Concomitant]
     Route: 065
     Dates: start: 19960101
  5. VERAPAMIL [Concomitant]
     Route: 065
     Dates: start: 19960101
  6. LANOXIN [Concomitant]
     Route: 065
     Dates: start: 19960101
  7. PRILOSEC [Concomitant]
     Route: 065
     Dates: start: 19960101

REACTIONS (33)
  - ABSCESS JAW [None]
  - ANXIETY [None]
  - ATRIAL FIBRILLATION [None]
  - BRONCHITIS [None]
  - CARDIAC FAILURE [None]
  - CARDIOMYOPATHY [None]
  - CHOLECYSTITIS ACUTE [None]
  - CHOLELITHIASIS [None]
  - CHRONIC OBSTRUCTIVE PULMONARY DISEASE [None]
  - DEPRESSION [None]
  - HERPES ZOSTER [None]
  - HYPONATRAEMIA [None]
  - IMMUNOSUPPRESSION [None]
  - LOBAR PNEUMONIA [None]
  - LUMBAR RADICULOPATHY [None]
  - MITRAL VALVE PROLAPSE [None]
  - NEOPLASM [None]
  - NERVE ROOT LESION [None]
  - ORAL INFECTION [None]
  - OSTEOMYELITIS [None]
  - OSTEONECROSIS [None]
  - PAIN [None]
  - PATHOLOGICAL FRACTURE [None]
  - PELVIC FRACTURE [None]
  - POOR DENTAL CONDITION [None]
  - POST HERPETIC NEURALGIA [None]
  - RHINITIS ALLERGIC [None]
  - SINUS DISORDER [None]
  - SINUSITIS [None]
  - TOOTH ABSCESS [None]
  - TRANSIENT ISCHAEMIC ATTACK [None]
  - TRAUMATIC BRAIN INJURY [None]
  - WEIGHT DECREASED [None]
